FAERS Safety Report 8581003-2 (Version None)
Quarter: 2012Q3

REPORT INFORMATION
  Report Type: 
  Country: None (occurrence: None)
  Receive Date: 20120809
  Receipt Date: 20120807
  Transmission Date: 20120928
  Serious: No
  Sender: FDA-Public Use
  Company Number: US-PFIZER INC-2012109301

PATIENT
  Age: 69 Year
  Sex: Female
  Weight: 58.05 kg

DRUGS (5)
  1. CHANTIX [Suspect]
     Dosage: 1 MG, 3X/DAY
     Route: 048
     Dates: start: 20120401, end: 20120101
  2. CHANTIX [Suspect]
     Dosage: 1 MG, 2X/DAY
     Route: 048
     Dates: start: 20120401, end: 20120401
  3. CHANTIX [Suspect]
     Indication: SMOKING CESSATION THERAPY
     Dosage: 0.5 MG, 1X/DAY
     Route: 048
     Dates: start: 20120401, end: 20120401
  4. VENTOLIN [Concomitant]
     Indication: CHRONIC OBSTRUCTIVE PULMONARY DISEASE
     Dosage: UNK
  5. NICOTINE [Suspect]
     Indication: SMOKING CESSATION THERAPY
     Dosage: UNK
     Dates: start: 20120101, end: 20120701

REACTIONS (3)
  - DRUG INEFFECTIVE [None]
  - WITHDRAWAL SYNDROME [None]
  - WEIGHT INCREASED [None]
